FAERS Safety Report 4642973-8 (Version None)
Quarter: 2005Q2

REPORT INFORMATION
  Report Type: 
  Country: None (occurrence: None)
  Receive Date: 20050422
  Receipt Date: 20040507
  Transmission Date: 20051028
  Serious: Yes (Life-Threatening, Congenital Anomaly)
  Sender: FDA-Public Use
  Company Number: FR-ABBOTT-04P-056-0260140-00

PATIENT
  Age: 1 Day
  Sex: Female
  Weight: 2.33 kg

DRUGS (2)
  1. DEPAKOTE [Suspect]
     Indication: DRUG EXPOSURE DURING PREGNANCY
  2. DEPAKOTE [Suspect]

REACTIONS (5)
  - CONGENITAL ARTERIAL MALFORMATION [None]
  - CONGENITAL CARDIOVASCULAR ANOMALY [None]
  - FINGER HYPOPLASIA [None]
  - FOETAL GROWTH RETARDATION [None]
  - KIDNEY MALFORMATION [None]
